FAERS Safety Report 7900558-1 (Version None)
Quarter: 2011Q4

REPORT INFORMATION
  Report Type: 
  Country: None (occurrence: None)
  Receive Date: 20111108
  Receipt Date: 20111025
  Transmission Date: 20120403
  Serious: Yes (Hospitalization)
  Sender: FDA-Public Use
  Company Number: US-MYLANLABS-2011S1022521

PATIENT
  Age: 37 Year
  Sex: Female

DRUGS (10)
  1. INSULIN [Suspect]
     Indication: CARDIOGENIC SHOCK
     Route: 040
  2. NOREPINEPHRINE BITARTRATE [Concomitant]
     Dosage: 40 MCG/MIN
     Route: 065
  3. WARFARIN SODIUM [Suspect]
     Indication: OVERDOSE
     Route: 048
  4. TRAMADOL HCL [Suspect]
     Indication: OVERDOSE
     Route: 048
  5. INSULIN [Suspect]
     Dosage: 130-1300 IU/H
     Route: 041
  6. VASOPRESSIN [Concomitant]
     Route: 065
  7. LOXAPINE [Suspect]
     Indication: OVERDOSE
     Route: 048
  8. DEXTROSE [Concomitant]
     Dosage: TOTAL DOSE ACCORDING TO TABLE: 2082G
     Route: 065
  9. AMLODIPINE [Suspect]
     Indication: OVERDOSE
     Route: 048
  10. CARBAMAZEPINE [Suspect]
     Indication: OVERDOSE
     Route: 048

REACTIONS (6)
  - HYPOTENSION [None]
  - CARDIOGENIC SHOCK [None]
  - DISSEMINATED INTRAVASCULAR COAGULATION [None]
  - HYPOGLYCAEMIA [None]
  - TACHYCARDIA [None]
  - OVERDOSE [None]
